FAERS Safety Report 10257429 (Version 1)
Quarter: 2014Q2

REPORT INFORMATION
  Report Type: Spontaneous
  Country: US (occurrence: None)
  Receive Date: 20140623
  Receipt Date: 20140623
  Transmission Date: 20141212
  Serious: Yes (Life-Threatening, Disabling)
  Sender: FDA-Public Use
  Company Number: None

PATIENT
  Age: 41 Year
  Sex: Female
  Weight: 99.79 kg

DRUGS (5)
  1. ORTHO MICRONOR [Suspect]
     Indication: ORAL CONTRACEPTION
     Dosage: ONE PILL EVERYDAY @ SAME TIME ONCE DAILY TAKEN BY MOUTH
     Route: 048
     Dates: start: 20140526, end: 20140615
  2. VITAMIN C [Concomitant]
  3. MMS [Concomitant]
  4. VINPOCETINE [Concomitant]
  5. LYSINE [Concomitant]

REACTIONS (8)
  - Breast tenderness [None]
  - Breast pain [None]
  - Acne cystic [None]
  - Depression [None]
  - Suicidal ideation [None]
  - Furuncle [None]
  - Anxiety [None]
  - Menorrhagia [None]
